FAERS Safety Report 5564946-3 (Version None)
Quarter: 2007Q4

REPORT INFORMATION
  Report Type: 
  Country: None (occurrence: None)
  Receive Date: 20071218
  Receipt Date: 20071214
  Transmission Date: 20080405
  Serious: Yes (Hospitalization)
  Sender: FDA-Public Use
  Company Number: B0496197A

PATIENT
  Age: 54 Year
  Sex: Female
  Weight: 60 kg

DRUGS (10)
  1. SERETIDE [Suspect]
     Indication: ASTHMA
     Dosage: 250MCG TWICE PER DAY
     Route: 055
     Dates: start: 20071115, end: 20071115
  2. GLIMICRON [Concomitant]
     Indication: DIABETES MELLITUS
     Dosage: 40MG PER DAY
     Route: 048
     Dates: start: 20070802
  3. GASTER [Concomitant]
     Indication: GASTRITIS
     Dosage: 20MG PER DAY
     Route: 048
  4. LIVALO [Concomitant]
     Dosage: 2MG PER DAY
     Route: 048
     Dates: start: 20060223
  5. HALCION [Concomitant]
     Indication: INSOMNIA
     Dosage: .25MG PER DAY
     Route: 048
     Dates: start: 20061005
  6. SINGULAIR [Concomitant]
     Indication: ASTHMA
     Dosage: 10MG PER DAY
     Route: 048
     Dates: start: 20051128
  7. THEO-DUR [Concomitant]
     Indication: ASTHMA
     Dosage: 400MG PER DAY
     Route: 048
     Dates: start: 20071103
  8. CLARITHROMYCIN [Concomitant]
     Indication: BRONCHITIS
     Dosage: 400MG PER DAY
     Route: 048
     Dates: start: 20071101, end: 20071121
  9. MEDICON [Concomitant]
     Indication: ASTHMA
     Dosage: 45MG PER DAY
     Route: 048
     Dates: start: 20071102, end: 20071128
  10. CHINESE MEDICINE [Concomitant]
     Indication: DIZZINESS
     Dosage: 7.5G PER DAY
     Route: 048
     Dates: start: 20070208

REACTIONS (4)
  - GAIT DISTURBANCE [None]
  - MYALGIA [None]
  - POLLAKIURIA [None]
  - THIRST [None]
